FAERS Safety Report 8320230-6 (Version None)
Quarter: 2012Q2

REPORT INFORMATION
  Report Type: 
  Country: None (occurrence: None)
  Receive Date: 20120430
  Receipt Date: 20120417
  Transmission Date: 20120825
  Serious: No
  Sender: FDA-Public Use
  Company Number: US-BIOGENIDEC-2012BI013392

PATIENT
  Sex: Male

DRUGS (2)
  1. AVONEX [Suspect]
     Indication: MULTIPLE SCLEROSIS
     Route: 030
     Dates: start: 20020415, end: 20030101
  2. AVONEX [Suspect]
     Route: 030
     Dates: start: 20030101

REACTIONS (6)
  - OPTIC NEURITIS [None]
  - GLAUCOMA [None]
  - VISION BLURRED [None]
  - SENSORY DISTURBANCE [None]
  - HEART VALVE INCOMPETENCE [None]
  - EYE ALLERGY [None]
